FAERS Safety Report 8549820-2 (Version None)
Quarter: 2012Q3

REPORT INFORMATION
  Report Type: 
  Country: None (occurrence: None)
  Receive Date: 20120730
  Receipt Date: 20120716
  Transmission Date: 20120928
  Serious: Yes (Death, Hospitalization)
  Sender: FDA-Public Use
  Company Number: US-MYLANLABS-2012S1014891

PATIENT
  Age: 24 Year
  Sex: Female

DRUGS (4)
  1. CITALOPRAM HYDROBROMIDE [Suspect]
     Indication: MULTIPLE DRUG OVERDOSE
     Dosage: POTENTIAL MAXIMUM OF 1.8G; 20MG DOSAGE FORM
     Route: 048
  2. CLONAZEPAM [Suspect]
     Indication: MULTIPLE DRUG OVERDOSE
     Dosage: POTENTIAL MAXIMUM OF 90MG; 0.5MG DOSAGE FORM
     Route: 048
  3. BUPROPION HCL [Suspect]
     Indication: MULTIPLE DRUG OVERDOSE
     Dosage: POTENTIAL MAXIMUM OF 13.5G; EXTENDED-RELEASE 150MG DOSAGE FORM
     Route: 048
  4. TRAZODONE HYDROCHLORIDE [Suspect]
     Indication: MULTIPLE DRUG OVERDOSE
     Dosage: POTENTIAL MAXIMUM OF 4.5G; 50MG DOSAGE FORM
     Route: 048

REACTIONS (10)
  - CARDIOTOXICITY [None]
  - VENTRICULAR TACHYCARDIA [None]
  - MULTIPLE DRUG OVERDOSE [None]
  - HYPOTENSION [None]
  - ELECTROCARDIOGRAM QRS COMPLEX PROLONGED [None]
  - TOXICITY TO VARIOUS AGENTS [None]
  - MYOCLONUS [None]
  - PULSE ABSENT [None]
  - UNRESPONSIVE TO STIMULI [None]
  - GRAND MAL CONVULSION [None]
